FAERS Safety Report 12143933 (Version 1)
Quarter: 2016Q1

REPORT INFORMATION
  Report Type: Spontaneous
  Country: US (occurrence: US)
  Receive Date: 20160304
  Receipt Date: 20160304
  Transmission Date: 20160526
  Serious: No
  Sender: FDA-Public Use
  Company Number: US-JNJFOC-20160124978

PATIENT

DRUGS (2)
  1. ROGAINE [Suspect]
     Active Substance: MINOXIDIL
     Route: 065
  2. ROGAINE [Suspect]
     Active Substance: MINOXIDIL
     Indication: PRODUCT USED FOR UNKNOWN INDICATION
     Route: 065

REACTIONS (8)
  - Hyperaesthesia [Unknown]
  - Visual impairment [Unknown]
  - Eyelid irritation [Unknown]
  - Swelling [Unknown]
  - Skin irritation [Unknown]
  - Swelling face [Unknown]
  - Eyelid oedema [Unknown]
  - Nasal oedema [Unknown]
